FAERS Safety Report 16625293 (Version 1)
Quarter: 2019Q3

REPORT INFORMATION
  Report Type: Spontaneous
  Country: US (occurrence: US)
  Receive Date: 20190611
  Receipt Date: 20190611
  Transmission Date: 20191004
  Serious: Yes (Hospitalization)
  Sender: FDA-Public Use
  Company Number: None

PATIENT
  Age: 84 Year
  Sex: Male

DRUGS (1)
  1. FOSINOPRIL [Suspect]
     Active Substance: FOSINOPRIL
     Indication: ANAPHYLACTIC REACTION
     Route: 048
     Dates: start: 20171011, end: 20190107

REACTIONS (2)
  - Anaphylactic reaction [None]
  - Swollen tongue [None]

NARRATIVE: CASE EVENT DATE: 20190330
